FAERS Safety Report 7611889-7 (Version None)
Quarter: 2011Q3

REPORT INFORMATION
  Report Type: 
  Country: None (occurrence: None)
  Receive Date: 20110715
  Receipt Date: 20110706
  Transmission Date: 20111222
  Serious: Yes (Hospitalization)
  Sender: FDA-Public Use
  Company Number: US-BRISTOL-MYERS SQUIBB COMPANY-15574908

PATIENT
  Age: 65 Year
  Sex: Female
  Weight: 65 kg

DRUGS (5)
  1. SPRYCEL [Suspect]
     Indication: CHRONIC MYELOID LEUKAEMIA
  2. LOSARTAN [Concomitant]
  3. ATIVAN [Concomitant]
  4. FUROSEMIDE [Concomitant]
  5. OXYGEN [Concomitant]
     Route: 045

REACTIONS (15)
  - HEART RATE INCREASED [None]
  - CHILLS [None]
  - WEIGHT DECREASED [None]
  - TREMOR [None]
  - BLOOD PRESSURE INCREASED [None]
  - MEMORY IMPAIRMENT [None]
  - PLEURAL EFFUSION [None]
  - VOMITING [None]
  - PANIC ATTACK [None]
  - FATIGUE [None]
  - DIZZINESS [None]
  - CONFUSIONAL STATE [None]
  - DISTURBANCE IN ATTENTION [None]
  - CHEST PAIN [None]
  - FLUSHING [None]
